FAERS Safety Report 9207877 (Version 1)
Quarter: 2013Q2

REPORT INFORMATION
  Report Type: Spontaneous
  Country: JP (occurrence: JP)
  Receive Date: 20130403
  Receipt Date: 20130403
  Transmission Date: 20140414
  Serious: Yes (Other)
  Sender: FDA-Public Use
  Company Number: JP-GLAXOSMITHKLINE-B0879288A

PATIENT
  Age: 10 Year
  Sex: 0

DRUGS (3)
  1. LAMICTAL [Suspect]
     Indication: EPILEPSY
     Dosage: 76MG PER DAY
     Route: 048
     Dates: end: 201303
  2. TOPINA [Suspect]
     Indication: EPILEPSY
     Route: 048
     Dates: start: 201302, end: 201303
  3. SODIUM VALPROATE [Concomitant]
     Indication: EPILEPSY
     Route: 048
     Dates: end: 201303

REACTIONS (4)
  - Pancytopenia [Not Recovered/Not Resolved]
  - Leukaemia [Unknown]
  - Decreased appetite [Unknown]
  - Drug effect decreased [Unknown]
